FAERS Safety Report 7098459-7 (Version None)
Quarter: 2010Q4

REPORT INFORMATION
  Report Type: 
  Country: None (occurrence: None)
  Receive Date: 20101112
  Receipt Date: 20101103
  Transmission Date: 20110411
  Serious: Yes (Hospitalization)
  Sender: FDA-Public Use
  Company Number: GB-US-EMD SERONO, INC.-220049J09GBR

PATIENT
  Sex: Female

DRUGS (1)
  1. SAIZEN [Suspect]
     Indication: PRODUCT USED FOR UNKNOWN INDICATION
     Dates: start: 20090130

REACTIONS (4)
  - ADRENOCORTICAL INSUFFICIENCY ACUTE [None]
  - LOBAR PNEUMONIA [None]
  - PAIN IN EXTREMITY [None]
  - SEPTIC SHOCK [None]
